FAERS Safety Report 5657048-9 (Version None)
Quarter: 2008Q1

REPORT INFORMATION
  Report Type: 
  Country: None (occurrence: None)
  Receive Date: 20080310
  Receipt Date: 20080306
  Transmission Date: 20080703
  Serious: Yes (Hospitalization)
  Sender: FDA-Public Use
  Company Number: JP-SP-2008-00425

PATIENT
  Age: 81 Year
  Sex: Male

DRUGS (10)
  1. IMMUCYST [Suspect]
     Indication: BLADDER CANCER
     Route: 043
     Dates: start: 20071204, end: 20080205
  2. IMMUCYST [Suspect]
     Route: 043
     Dates: start: 20071204, end: 20080205
  3. BICALUTAMIDE [Concomitant]
     Dates: start: 20071030
  4. GOSERELIN ACETATE [Concomitant]
     Dates: start: 20071030
  5. SILODOSIN [Concomitant]
     Dates: start: 20070928
  6. DISTIGMINE BROMIDE [Concomitant]
     Dates: start: 20071106
  7. LEVOFLOXACIN [Concomitant]
     Dates: start: 20071204, end: 20080205
  8. MAGNESIUM OXIDE [Concomitant]
     Dates: start: 20071204
  9. IMIDAFENACIN [Concomitant]
     Dates: start: 20080205
  10. FERROUS CITRATE [Concomitant]
     Dates: start: 20080205

REACTIONS (2)
  - INCORRECT DRUG DOSAGE FORM ADMINISTERED [None]
  - PYREXIA [None]
